FAERS Safety Report 9695376 (Version 1)
Quarter: 2013Q4

REPORT INFORMATION
  Report Type: Spontaneous
  Country: US (occurrence: None)
  Receive Date: 20131118
  Receipt Date: 20131118
  Transmission Date: 20140711
  Serious: Yes (Disabling)
  Sender: FDA-Public Use
  Company Number: None

PATIENT
  Age: 24 Year
  Sex: Female
  Weight: 53.52 kg

DRUGS (2)
  1. LAMITRIGINE [Suspect]
     Indication: MOOD ALTERED
     Route: 048
     Dates: start: 20131002
  2. LAMITRIGINE [Suspect]
     Indication: BIPOLAR II DISORDER
     Route: 048
     Dates: start: 20131002

REACTIONS (1)
  - Tic [None]
